FAERS Safety Report 23479447 (Version 2)
Quarter: 2024Q1

REPORT INFORMATION
  Report Type: Spontaneous
  Country: JP (occurrence: JP)
  Receive Date: 20240205
  Receipt Date: 20240223
  Transmission Date: 20240410
  Serious: Yes (Death, Disabling)
  Sender: FDA-Public Use
  Company Number: JP-BAYER-2024A016938

PATIENT
  Age: 88 Year
  Sex: Female

DRUGS (4)
  1. RIVAROXABAN [Suspect]
     Active Substance: RIVAROXABAN
     Indication: Atrial fibrillation
     Route: 048
  2. RIVAROXABAN [Suspect]
     Active Substance: RIVAROXABAN
     Indication: Cerebrovascular accident prophylaxis
     Route: 048
  3. METILDIGOXIN [Concomitant]
     Active Substance: METILDIGOXIN
  4. CILOSTAZOL [Concomitant]
     Active Substance: CILOSTAZOL

REACTIONS (7)
  - Embolic cerebral infarction [Fatal]
  - Apallic syndrome [Not Recovered/Not Resolved]
  - General physical health deterioration [Not Recovered/Not Resolved]
  - Physical deconditioning [Not Recovered/Not Resolved]
  - Haemorrhage subcutaneous [Unknown]
  - Hyperhidrosis [Unknown]
  - Pruritus [Unknown]
